FAERS Safety Report 23399778 (Version 2)
Quarter: 2024Q1

REPORT INFORMATION
  Report Type: Spontaneous
  Country: JP (occurrence: JP)
  Receive Date: 20240114
  Receipt Date: 20240203
  Transmission Date: 20240410
  Serious: Yes (Other)
  Sender: FDA-Public Use
  Company Number: JP-STRIDES ARCOLAB LIMITED-2024SP000389

PATIENT
  Age: 67 Year
  Sex: Male

DRUGS (6)
  1. CARBOPLATIN [Suspect]
     Active Substance: CARBOPLATIN
     Indication: Small cell lung cancer extensive stage
     Dosage: 125 MILLIGRAM/KILOGRAM, CYCLICAL ON DAY 1 (FIRST LINE THERAPY)
     Route: 065
  2. CARBOPLATIN [Suspect]
     Active Substance: CARBOPLATIN
     Dosage: UNK, CYCLICAL (DOSE REDUCED)
     Route: 065
  3. ETOPOSIDE [Suspect]
     Active Substance: ETOPOSIDE
     Indication: Small cell lung cancer extensive stage
     Dosage: 50 MILLIGRAM/SQ. METER, CYCLICAL ON DAYS 1 AND 3 (FIRST LINE THERAPY)
     Route: 065
  4. ETOPOSIDE [Suspect]
     Active Substance: ETOPOSIDE
     Dosage: UNK, CYCLICAL (DOSE REDUCED)
     Route: 065
  5. DURVALUMAB [Suspect]
     Active Substance: DURVALUMAB
     Indication: Small cell lung cancer extensive stage
     Dosage: 1500 MILLIGRAM/KILOGRAM, CYCLICAL ON DAY 1 (FIRST LINE THERAPY)
     Route: 065
  6. DURVALUMAB [Suspect]
     Active Substance: DURVALUMAB
     Dosage: UNK, CYCLICAL (DOSE DECREASED)
     Route: 065

REACTIONS (4)
  - Upper gastrointestinal haemorrhage [Unknown]
  - Neutropenia [Unknown]
  - Anaemia [Unknown]
  - Off label use [Unknown]
